FAERS Safety Report 13613682 (Version 2)
Quarter: 2017Q2

REPORT INFORMATION
  Report Type: Spontaneous
  Country: US (occurrence: US)
  Receive Date: 20170605
  Receipt Date: 20170622
  Transmission Date: 20170830
  Serious: Yes (Hospitalization)
  Sender: FDA-Public Use
  Company Number: US-BEH-2017080961

PATIENT
  Sex: Female
  Weight: 43.99 kg

DRUGS (41)
  1. FUROSEMIDE. [Concomitant]
     Active Substance: FUROSEMIDE
  2. SIMETHICONE (DIMETHICONE) [Concomitant]
     Active Substance: DIMETHICONE
  3. CYCLOBENZAPRINE. [Concomitant]
     Active Substance: CYCLOBENZAPRINE
  4. STERILE WATER [Concomitant]
     Active Substance: WATER
  5. IPRATROPIUM [Concomitant]
     Active Substance: IPRATROPIUM
  6. OMEPRAZOLE. [Concomitant]
     Active Substance: OMEPRAZOLE
  7. DORZOLAMIDE TIMOLOL [Concomitant]
     Active Substance: DORZOLAMIDE
  8. PATADAY [Concomitant]
     Active Substance: OLOPATADINE HYDROCHLORIDE
  9. ZEMAIRA [Suspect]
     Active Substance: .ALPHA.1-PROTEINASE INHIBITOR HUMAN
     Indication: ESSENTIAL HYPERTENSION
     Dosage: UNK
     Route: 042
  10. EPIPEN [Concomitant]
     Active Substance: EPINEPHRINE
  11. GABAPENTIN. [Concomitant]
     Active Substance: GABAPENTIN
  12. DIPHENHYDRAMINE. [Concomitant]
     Active Substance: DIPHENHYDRAMINE
  13. HEPARIN [Concomitant]
     Active Substance: HEPARIN SODIUM
  14. SODIUM CHLORIDE. [Concomitant]
     Active Substance: SODIUM CHLORIDE
  15. MONTELUKAST [Concomitant]
     Active Substance: MONTELUKAST SODIUM
  16. SERTRALINE [Concomitant]
     Active Substance: SERTRALINE HYDROCHLORIDE
  17. LUMIGAN [Concomitant]
     Active Substance: BIMATOPROST
  18. MAGNESIUM [Concomitant]
     Active Substance: MAGNESIUM
  19. ADVAIR HFA [Concomitant]
     Active Substance: FLUTICASONE PROPIONATE\SALMETEROL XINAFOATE
  20. SPIRIVA [Concomitant]
     Active Substance: TIOTROPIUM BROMIDE MONOHYDRATE
  21. OXYGEN. [Concomitant]
     Active Substance: OXYGEN
  22. ALBUTEROL                          /00139501/ [Concomitant]
     Active Substance: ALBUTEROL
  23. CALCIUM + D DUETTO [Concomitant]
  24. COMBIGAN [Concomitant]
     Active Substance: BRIMONIDINE TARTRATE\TIMOLOL MALEATE
  25. ZEMAIRA [Suspect]
     Active Substance: .ALPHA.1-PROTEINASE INHIBITOR HUMAN
     Indication: EMPHYSEMA
  26. ACETAMINOPHEN. [Concomitant]
     Active Substance: ACETAMINOPHEN
  27. SUCRALFATE. [Concomitant]
     Active Substance: SUCRALFATE
  28. VITAMIN D3 [Concomitant]
     Active Substance: CHOLECALCIFEROL
  29. VITAMIN B12 [Concomitant]
     Active Substance: CYANOCOBALAMIN
  30. LOSARTAN. [Concomitant]
     Active Substance: LOSARTAN
  31. GARLIC                             /01570501/ [Concomitant]
     Active Substance: GARLIC
  32. CAT^S CLAW [Concomitant]
     Active Substance: CAT^S CLAW
  33. ALENDRONATE [Concomitant]
     Active Substance: ALENDRONATE SODIUM
  34. TRAMADOL. [Concomitant]
     Active Substance: TRAMADOL
  35. VOLTAREN [Concomitant]
     Active Substance: DICLOFENAC SODIUM
  36. ONDANSETRON [Concomitant]
     Active Substance: ONDANSETRON
  37. ZEMAIRA [Suspect]
     Active Substance: .ALPHA.1-PROTEINASE INHIBITOR HUMAN
     Indication: ALPHA-1 ANTI-TRYPSIN DEFICIENCY
     Dosage: 60 MG/KG, QW
     Route: 042
     Dates: start: 20050926
  38. NITROFURANTOINE M.C. [Concomitant]
  39. PANTOPRAZOLE [Concomitant]
     Active Substance: PANTOPRAZOLE
  40. METHOCARBAMOL. [Concomitant]
     Active Substance: METHOCARBAMOL
  41. SOTALOL. [Concomitant]
     Active Substance: SOTALOL

REACTIONS (2)
  - Blood pressure increased [Unknown]
  - Malaise [Unknown]
